FAERS Safety Report 17683726 (Version 1)
Quarter: 2020Q2

REPORT INFORMATION
  Report Type: Spontaneous
  Country: US (occurrence: US)
  Receive Date: 20200417
  Receipt Date: 20200417
  Transmission Date: 20200714
  Serious: Yes (Life-Threatening)
  Sender: FDA-Public Use
  Company Number: None

PATIENT
  Age: 60 Year
  Sex: Female
  Weight: 95.25 kg

DRUGS (2)
  1. LOSARTAN 50MG [Suspect]
     Active Substance: LOSARTAN
     Indication: HYPERTENSION
     Dosage: ?          QUANTITY:30 DF DOSAGE FORM;OTHER ROUTE:1 DOSE?
  2. THYROID - ARMOR [Concomitant]

REACTIONS (5)
  - Tachycardia [None]
  - Product quality issue [None]
  - Product substitution issue [None]
  - Product shape issue [None]
  - Wrong drug [None]

NARRATIVE: CASE EVENT DATE: 20200220
